FAERS Safety Report 5861236-6 (Version None)
Quarter: 2008Q3

REPORT INFORMATION
  Report Type: 
  Country: None (occurrence: None)
  Receive Date: 20080827
  Receipt Date: 20080312
  Transmission Date: 20090109
  Serious: No
  Sender: FDA-Public Use
  Company Number: US-ABBOTT-08P-163-0442437-00

PATIENT
  Sex: Male
  Weight: 102 kg

DRUGS (6)
  1. NIASPAN [Suspect]
     Indication: LOW DENSITY LIPOPROTEIN INCREASED
     Route: 048
     Dates: start: 20060101
  2. NIASPAN [Suspect]
     Indication: HIGH DENSITY LIPOPROTEIN DECREASED
  3. ROSUVASTATIN [Concomitant]
     Indication: LOW DENSITY LIPOPROTEIN INCREASED
  4. ROSUVASTATIN [Concomitant]
     Indication: HIGH DENSITY LIPOPROTEIN DECREASED
  5. METOPROLOL SUCCINATE [Concomitant]
     Indication: HYPERTENSION
     Route: 048
  6. LISINOPRIL [Concomitant]
     Indication: HYPERTENSION
     Route: 048

REACTIONS (3)
  - BURNING SENSATION [None]
  - FLUSHING [None]
  - PAIN IN EXTREMITY [None]
